FAERS Safety Report 26083275 (Version 1)
Quarter: 2025Q4

REPORT INFORMATION
  Report Type: Spontaneous
  Country: US (occurrence: None)
  Receive Date: 20251124
  Receipt Date: 20251124
  Transmission Date: 20260118
  Serious: Yes (Life-Threatening)
  Sender: FDA-CTU
  Company Number: None

PATIENT
  Age: 74 Year
  Sex: Male

DRUGS (1)
  1. XOLAIR [Suspect]
     Active Substance: OMALIZUMAB
     Indication: Rhinitis
     Dosage: OTHER FREQUENCY : OTHER 2 WEEKS ;?

REACTIONS (3)
  - Acute myocardial infarction [None]
  - Staphylococcal infection [None]
  - Intentional dose omission [None]
